FAERS Safety Report 4919934-4 (Version None)
Quarter: 2006Q1

REPORT INFORMATION
  Report Type: 
  Country: None (occurrence: None)
  Receive Date: 20060223
  Receipt Date: 20060127
  Transmission Date: 20060701
  Serious: Yes (Disabling)
  Sender: FDA-Public Use
  Company Number: PHFR2006GB00691

PATIENT
  Sex: Male

DRUGS (2)
  1. ZOMETA [Suspect]
     Indication: PROSTATE CANCER
  2. ACETAMINOPHEN [Concomitant]
     Route: 065

REACTIONS (2)
  - DEAFNESS [None]
  - DYSPHONIA [None]
